FAERS Safety Report 22654665 (Version 1)
Quarter: 2023Q2

REPORT INFORMATION
  Report Type: Spontaneous
  Country: AU (occurrence: AU)
  Receive Date: 20230629
  Receipt Date: 20230629
  Transmission Date: 20230721
  Serious: Yes (Other)
  Sender: FDA-Public Use
  Company Number: AU-002147023-NVSC2023AU147724

PATIENT
  Age: 44 Year

DRUGS (2)
  1. IMATINIB [Suspect]
     Active Substance: IMATINIB
     Indication: Chronic myeloid leukaemia
     Dosage: 400 MG
     Route: 065
     Dates: start: 2010
  2. IMATINIB [Suspect]
     Active Substance: IMATINIB
     Dosage: 600 MG
     Route: 065
     Dates: end: 2013

REACTIONS (6)
  - Nephrolithiasis [Unknown]
  - Drug intolerance [Unknown]
  - Inflammation [Unknown]
  - Hypercholesterolaemia [Unknown]
  - Eczema [Unknown]
  - Blood creatine phosphokinase increased [Unknown]
